FAERS Safety Report 8195364-X (Version None)
Quarter: 2012Q1

REPORT INFORMATION
  Report Type: 
  Country: None (occurrence: None)
  Receive Date: 20120308
  Receipt Date: 20120229
  Transmission Date: 20120608
  Serious: Yes (Congenital Anomaly)
  Sender: FDA-Public Use
  Company Number: US-GLAXOSMITHKLINE-A0968873A

PATIENT
  Sex: Male

DRUGS (1)
  1. VALACYCLOVIR [Suspect]
     Indication: GENITAL HERPES
     Dosage: 500MG TWICE PER DAY
     Route: 064

REACTIONS (18)
  - CONGENITAL HERPES SIMPLEX INFECTION [None]
  - HAEMORRHAGE [None]
  - RETINAL SCAR [None]
  - HEPATOSPLENOMEGALY [None]
  - THROMBOCYTOPENIA [None]
  - JAUNDICE NEONATAL [None]
  - NERVOUS SYSTEM DISORDER [None]
  - MICROCEPHALY [None]
  - APLASIA [None]
  - SKIN EROSION [None]
  - ASPARTATE AMINOTRANSFERASE INCREASED [None]
  - CHORIORETINITIS [None]
  - CEREBRAL CALCIFICATION [None]
  - PREMATURE BABY [None]
  - BILIRUBIN CONJUGATED INCREASED [None]
  - MECONIUM PERITONITIS [None]
  - EXTREMITY CONTRACTURE [None]
  - FOETAL EXPOSURE DURING PREGNANCY [None]
